FAERS Safety Report 8105687 (Version 4)
Quarter: 2012Q4

REPORT INFORMATION
  Report Type: 
  Country: US (occurrence: US)
  Receive Date: 20110825
  Receipt Date: 20121130
  Transmission Date: 20130627
  Serious: No
  Sender: FDA-Public Use
  Company Number: US-B.I. PHARMACEUTICALS,INC./RIDGEFIELD-2011-BP-19940BP

PATIENT
  Age: 86 None
  Sex: Male

DRUGS (20)
  1. PRADAXA [Suspect]
     Indication: ATRIAL FIBRILLATION
     Dosage: 225 mg
     Route: 048
     Dates: start: 201101, end: 2011
  2. PRADAXA [Suspect]
     Dosage: 150 mg
     Route: 048
     Dates: start: 2011
  3. INDERAL [Concomitant]
     Indication: HYPERTENSION
     Dosage: 40 mg
     Route: 048
     Dates: start: 1990
  4. MONOPRIL [Concomitant]
     Indication: HYPERTENSION
     Dosage: 10 mg
     Route: 048
     Dates: start: 2007
  5. MONOPRIL [Concomitant]
     Indication: CARDIOVASCULAR EVENT PROPHYLAXIS
  6. TYLENOL [Concomitant]
     Indication: OSTEOARTHRITIS
     Dosage: 2600 mg
     Route: 048
  7. TYLENOL [Concomitant]
     Indication: ARTHRALGIA
  8. VICODIN [Concomitant]
     Indication: OSTEOARTHRITIS
     Route: 048
     Dates: start: 1998
  9. VICODIN [Concomitant]
     Indication: ARTHRALGIA
  10. LASIX [Concomitant]
     Indication: FLUID RETENTION
     Dosage: 40 mg
     Route: 048
     Dates: start: 201107
  11. LASIX [Concomitant]
     Indication: HYPERTENSION
  12. CASODEX [Concomitant]
     Indication: PROSTATE CANCER
     Dosage: 50 mg
     Route: 048
  13. CO-Q10 [Concomitant]
  14. VITAMIN D [Concomitant]
  15. VITAMIN C [Concomitant]
  16. ZANTAC [Concomitant]
  17. TUMS [Concomitant]
  18. REFRESH EYE DROPS [Concomitant]
     Indication: EYE HAEMORRHAGE
     Dates: start: 201012
  19. OXYCODONE [Concomitant]
     Indication: ARTHRITIS
     Route: 048
     Dates: start: 201006
  20. TYLENOL ARTHRITIS [Concomitant]
     Indication: ARTHRITIS
     Dosage: 650 mg
     Route: 048
     Dates: start: 2007

REACTIONS (12)
  - Arthralgia [Recovered/Resolved]
  - Dizziness [Recovered/Resolved]
  - Nausea [Recovered/Resolved]
  - Dyspepsia [Recovered/Resolved]
  - Abdominal discomfort [Recovered/Resolved]
  - Gastrooesophageal reflux disease [Recovered/Resolved]
  - Abdominal discomfort [Recovered/Resolved]
  - Oesophageal pain [Not Recovered/Not Resolved]
  - Gastrooesophageal reflux disease [Not Recovered/Not Resolved]
  - Hyperchlorhydria [Not Recovered/Not Resolved]
  - Dyspepsia [Not Recovered/Not Resolved]
  - Eye haemorrhage [Not Recovered/Not Resolved]
